FAERS Safety Report 21854807 (Version 2)
Quarter: 2023Q1

REPORT INFORMATION
  Report Type: Report from Study
  Country: CA (occurrence: CA)
  Receive Date: 20230112
  Receipt Date: 20230118
  Transmission Date: 20230417
  Serious: Yes (Other)
  Sender: FDA-Public Use
  Company Number: CA-002147023-NVSC2022CA291315

PATIENT
  Age: 68 Year
  Sex: Male

DRUGS (2)
  1. HYRIMOZ [Suspect]
     Active Substance: ADALIMUMAB-ADAZ
     Indication: Colitis ulcerative
     Dosage: 40 MG, Q2W
     Route: 058
     Dates: start: 20221207
  2. HYRIMOZ [Suspect]
     Active Substance: ADALIMUMAB-ADAZ
     Dosage: 40 MG, Q2W
     Route: 058
     Dates: start: 20230104

REACTIONS (6)
  - Haematochezia [Recovering/Resolving]
  - Diarrhoea [Unknown]
  - Mucous stools [Unknown]
  - Pain [Recovering/Resolving]
  - Flatulence [Unknown]
  - Abdominal pain lower [Unknown]
